FAERS Safety Report 5677403-0 (Version None)
Quarter: 2008Q1

REPORT INFORMATION
  Report Type: 
  Country: None (occurrence: None)
  Receive Date: 20080324
  Receipt Date: 20080312
  Transmission Date: 20080703
  Serious: Yes (Life-Threatening, Other)
  Sender: FDA-Public Use
  Company Number: US-PFIZER INC-2008023581

PATIENT
  Sex: Female
  Weight: 54.4 kg

DRUGS (10)
  1. CHANTIX [Suspect]
     Indication: SMOKING CESSATION THERAPY
     Dates: start: 20071010, end: 20071018
  2. ZOLOFT [Suspect]
  3. TAMOXIFEN CITRATE [Suspect]
  4. ALL OTHER THERAPEUTIC PRODUCTS [Suspect]
     Indication: ANAESTHESIA
  5. PHENOBARBITAL TAB [Concomitant]
     Indication: CONVULSION
  6. TEGRETOL [Concomitant]
     Indication: CONVULSION
  7. DONNATAL [Concomitant]
     Indication: IRRITABLE BOWEL SYNDROME
  8. VICODIN ES [Concomitant]
     Indication: FIBROMYALGIA
  9. TRINSICON [Concomitant]
     Indication: VITAMIN B12 DEFICIENCY
  10. PERCOCET [Concomitant]

REACTIONS (9)
  - ADVERSE DRUG REACTION [None]
  - BREAST CANCER [None]
  - DECREASED APPETITE [None]
  - DRUG ADMINISTRATION ERROR [None]
  - HALLUCINATION [None]
  - IRRITABLE BOWEL SYNDROME [None]
  - NAUSEA [None]
  - VISUAL DISTURBANCE [None]
  - VITAMIN B12 DEFICIENCY [None]
